FAERS Safety Report 14607183 (Version 1)
Quarter: 2018Q1

REPORT INFORMATION
  Report Type: Spontaneous
  Country: US (occurrence: US)
  Receive Date: 20180307
  Receipt Date: 20180307
  Transmission Date: 20180509
  Serious: No
  Sender: FDA-Public Use
  Company Number: US-LEXICON PHARMACEUTICALS, INC-18-1606-00226

PATIENT
  Age: 80 Year
  Sex: Female

DRUGS (1)
  1. TELOTRISTAT ETHYL [Suspect]
     Active Substance: TELOTRISTAT ETHYL
     Dosage: XERMELO STARTED ON AN UNSPECIFIED DATE IN LATE AUG2017 OR EARLY SEP2017
     Route: 048
     Dates: start: 2017

REACTIONS (1)
  - Abdominal pain upper [Not Recovered/Not Resolved]
